FAERS Safety Report 5360514-7 (Version None)
Quarter: 2007Q2

REPORT INFORMATION
  Report Type: 
  Country: None (occurrence: None)
  Receive Date: 20070618
  Receipt Date: 20070615
  Transmission Date: 20071010
  Serious: Yes (Hospitalization)
  Sender: FDA-Public Use
  Company Number: B0475325A

PATIENT
  Age: 81 Year
  Sex: Female

DRUGS (7)
  1. ZELITREX [Suspect]
     Indication: HERPES ZOSTER
     Route: 048
     Dates: start: 20070507, end: 20070517
  2. LOVENOX [Suspect]
     Indication: THROMBOSIS PROPHYLAXIS
     Dosage: .4ML PER DAY
     Route: 058
     Dates: start: 20070407, end: 20070518
  3. TENORMIN [Concomitant]
     Route: 065
  4. OMEPRAZOLE [Concomitant]
     Route: 048
  5. AMLOR [Concomitant]
     Route: 048
  6. MELPHALAN [Concomitant]
     Indication: MULTIPLE MYELOMA
     Route: 065
     Dates: start: 20070425
  7. PREDNISONE TAB [Concomitant]
     Indication: MULTIPLE MYELOMA
     Route: 065
     Dates: start: 20070425

REACTIONS (2)
  - ANAEMIA [None]
  - THROMBOCYTOPENIA [None]
